FAERS Safety Report 12120506 (Version 1)
Quarter: 2016Q1

REPORT INFORMATION
  Report Type: Spontaneous
  Country: US (occurrence: None)
  Receive Date: 20160226
  Receipt Date: 20160226
  Transmission Date: 20160526
  Serious: Yes (Hospitalization, Other)
  Sender: FDA-Public Use
  Company Number: US-MDT-ADR-2016-00304

PATIENT
  Age: 52 Year
  Sex: Male

DRUGS (2)
  1. DIAZEPAM 5 MG ORAL TABLET [Suspect]
     Active Substance: DIAZEPAM
     Dosage: 0.5 TAB TID
  2. COMPOUNDED BACLOFEN INTRATHECAL 500 MCG/ML [Suspect]
     Active Substance: BACLOFEN
     Indication: MUSCLE SPASTICITY
     Dosage: 123.17 MCG/DAY

REACTIONS (27)
  - Insomnia [None]
  - Muscular weakness [None]
  - Vision blurred [None]
  - Joint stiffness [None]
  - Drug withdrawal syndrome [None]
  - Pain in extremity [None]
  - Hypoaesthesia [None]
  - Vertebral foraminal stenosis [None]
  - Intervertebral disc protrusion [None]
  - Muscle spasticity [None]
  - Pain [None]
  - Gait disturbance [None]
  - Dyspnoea [None]
  - Contusion [None]
  - Arthralgia [None]
  - Seizure [None]
  - Peripheral sensorimotor neuropathy [None]
  - Vomiting [None]
  - Muscle rigidity [None]
  - Spinal pain [None]
  - Spinal osteoarthritis [None]
  - Drug screen positive [None]
  - Depression [None]
  - Osteoarthritis [None]
  - Intervertebral disc degeneration [None]
  - Back pain [None]
  - Muscle spasms [None]
